FAERS Safety Report 8620753-6 (Version None)
Quarter: 2012Q3

REPORT INFORMATION
  Report Type: 
  Country: None (occurrence: None)
  Receive Date: 20120824
  Receipt Date: 20120816
  Transmission Date: 20120928
  Serious: Yes (Other)
  Sender: FDA-Public Use
  Company Number: CN-ASTRAZENECA-2012SE60758

PATIENT
  Age: 29873 Day
  Sex: Male
  Weight: 65 kg

DRUGS (2)
  1. CRESTOR [Suspect]
     Indication: CORONARY ARTERY DISEASE
     Route: 048
     Dates: start: 20110604, end: 20110614
  2. CRESTOR [Suspect]
     Indication: CARDIAC FAILURE
     Route: 048
     Dates: start: 20110604, end: 20110614

REACTIONS (1)
  - HEPATIC FUNCTION ABNORMAL [None]
